FAERS Safety Report 23897452 (Version 8)
Quarter: 2025Q1

REPORT INFORMATION
  Report Type: Spontaneous
  Country: US (occurrence: US)
  Receive Date: 20240524
  Receipt Date: 20250109
  Transmission Date: 20250409
  Serious: No
  Sender: BIOGEN
  Company Number: US-BIOGEN-2024BI01265978

PATIENT
  Sex: Female

DRUGS (2)
  1. VUMERITY [Suspect]
     Active Substance: DIROXIMEL FUMARATE
     Indication: Multiple sclerosis
     Dosage: START DATE ALSO REPORTED AS 06-AUG-2024
     Route: 050
     Dates: start: 20240518
  2. ESTRADIOL [Concomitant]
     Active Substance: ESTRADIOL
     Route: 050

REACTIONS (4)
  - Multiple sclerosis [Unknown]
  - Pain in extremity [Unknown]
  - Asthenia [Unknown]
  - Hypoaesthesia [Unknown]
